FAERS Safety Report 15627824 (Version 3)
Quarter: 2019Q1

REPORT INFORMATION
  Report Type: Spontaneous
  Country: US (occurrence: US)
  Receive Date: 20181116
  Receipt Date: 20190115
  Transmission Date: 20190417
  Serious: Yes (Hospitalization, Other)
  Sender: FDA-Public Use
  Company Number: US-ASTRAZENECA-2018SF44104

PATIENT
  Age: 19687 Day
  Sex: Female
  Weight: 38.6 kg

DRUGS (9)
  1. FASENRA [Suspect]
     Active Substance: BENRALIZUMAB
     Indication: EOSINOPHIL COUNT
     Dosage: 30MG/ML MONTHLY
     Route: 058
     Dates: start: 201804, end: 20181024
  2. SINGULAIR [Concomitant]
     Active Substance: MONTELUKAST SODIUM
     Indication: ASTHMA
     Dates: start: 20180921
  3. PREDNISONE. [Concomitant]
     Active Substance: PREDNISONE
     Indication: ASTHMA
     Dosage: 3 TABLET DAILY TAPER BY 1 TABLET EVERY 3 DAYS
     Dates: start: 20181023
  4. ADVAIR DISKUS [Concomitant]
     Active Substance: FLUTICASONE PROPIONATE\SALMETEROL XINAFOATE
     Indication: ASTHMA
     Dosage: 500 MCG-50 MCG/DOSE POWDER FOR INHALATION 1 PUFF BID RINSE AFTER USE
     Dates: start: 20180921
  5. LEVAQUIN [Concomitant]
     Active Substance: LEVOFLOXACIN
     Indication: ASTHMA
     Dates: start: 20181023
  6. ADVAIR DISKUS [Concomitant]
     Active Substance: FLUTICASONE PROPIONATE\SALMETEROL XINAFOATE
     Indication: ASTHMA
     Dosage: 250 MCG-50 MEG/DOSE FOR INHALATION 1 UNIT(S) BID
     Dates: start: 20170922
  7. PHENOBARBITAL. [Concomitant]
     Active Substance: PHENOBARBITAL
     Dosage: 100 MG TAB 1 TABLET
     Dates: start: 20111027
  8. FASENRA [Suspect]
     Active Substance: BENRALIZUMAB
     Indication: ASTHMA
     Dosage: 30MG/ML MONTHLY
     Route: 058
     Dates: start: 201804, end: 20181024
  9. ALBUTEROL SULFATE HFA [Concomitant]
     Active Substance: ALBUTEROL SULFATE
     Dosage: 90 MCG/ACTUATION AEROSOL INHALER 1 PUFF Q6H
     Dates: start: 20180921

REACTIONS (27)
  - Hypophagia [Unknown]
  - Drug hypersensitivity [Unknown]
  - Night sweats [Unknown]
  - Vomiting [Unknown]
  - Feeling abnormal [Unknown]
  - Influenza like illness [Unknown]
  - Pancreatitis [Unknown]
  - Pyrexia [Not Recovered/Not Resolved]
  - Chest pain [Recovered/Resolved]
  - Loss of personal independence in daily activities [Unknown]
  - Nausea [Unknown]
  - Nasal polyps [Unknown]
  - Pain [Unknown]
  - Rash pruritic [Unknown]
  - Rash [Not Recovered/Not Resolved]
  - Chills [Unknown]
  - Malaise [Unknown]
  - Depressed mood [Unknown]
  - Hyperhidrosis [Unknown]
  - Cough [Unknown]
  - Abdominal pain [Unknown]
  - Decreased appetite [Unknown]
  - Hot flush [Unknown]
  - Immune system disorder [Unknown]
  - Weight decreased [Unknown]
  - Diarrhoea [Unknown]
  - Abdominal discomfort [Unknown]

NARRATIVE: CASE EVENT DATE: 20181017
